FAERS Safety Report 23858033 (Version 1)
Quarter: 2024Q2

REPORT INFORMATION
  Report Type: Spontaneous
  Country: EG (occurrence: EG)
  Receive Date: 20240515
  Receipt Date: 20240515
  Transmission Date: 20240716
  Serious: Yes (Other)
  Sender: FDA-Public Use
  Company Number: EG-HIKMA PHARMACEUTICALS-EG-H14001-24-03993

PATIENT
  Age: 40 Year
  Sex: Male
  Weight: 97 kg

DRUGS (12)
  1. DOXORUBICIN [Suspect]
     Active Substance: DOXORUBICIN
     Indication: Hodgkin^s disease
     Dosage: 55 MILLIGRAM, QOW
     Route: 041
  2. DOXORUBICIN [Suspect]
     Active Substance: DOXORUBICIN
     Dosage: 55 MILLIGRAM, QOW
     Route: 041
     Dates: start: 20231121
  3. DOXORUBICIN [Suspect]
     Active Substance: DOXORUBICIN
     Dosage: 55 MILLIGRAM, QOW
     Route: 041
     Dates: start: 20240118
  4. BLEOMYCIN SULFATE [Suspect]
     Active Substance: BLEOMYCIN SULFATE
     Indication: Hodgkin^s disease
     Dosage: 22 INTERNATIONAL UNIT, QOW
     Route: 041
  5. BLEOMYCIN SULFATE [Suspect]
     Active Substance: BLEOMYCIN SULFATE
     Dosage: 22 INTERNATIONAL UNIT, QOW
     Route: 041
     Dates: start: 20231121
  6. BLEOMYCIN SULFATE [Suspect]
     Active Substance: BLEOMYCIN SULFATE
     Dosage: 22 INTERNATIONAL UNIT, QOW
     Route: 041
     Dates: start: 20240118
  7. DACARBAZINE [Suspect]
     Active Substance: DACARBAZINE
     Indication: Hodgkin^s disease
     Dosage: 825 MILLIGRAM, QOW
     Route: 041
  8. DACARBAZINE [Suspect]
     Active Substance: DACARBAZINE
     Dosage: 825 MILLIGRAM, QOW
     Route: 041
     Dates: start: 20231123
  9. DACARBAZINE [Suspect]
     Active Substance: DACARBAZINE
     Dosage: 825 MILLIGRAM, QOW
     Route: 041
     Dates: start: 20240118
  10. VINCRISTINE SULFATE [Suspect]
     Active Substance: VINCRISTINE SULFATE
     Indication: Hodgkin^s disease
     Dosage: 2 MILLIGRAM, QOW
     Route: 041
  11. VINCRISTINE SULFATE [Suspect]
     Active Substance: VINCRISTINE SULFATE
     Dosage: 2 MILLIGRAM, QOW
     Route: 041
     Dates: start: 20231121
  12. VINCRISTINE SULFATE [Suspect]
     Active Substance: VINCRISTINE SULFATE
     Dosage: 2 MILLIGRAM, QOW
     Route: 041
     Dates: start: 20240118

REACTIONS (3)
  - Abdominal pain upper [Not Recovered/Not Resolved]
  - Abdominal distension [Not Recovered/Not Resolved]
  - Neutropenia [Unknown]

NARRATIVE: CASE EVENT DATE: 20231122
